FAERS Safety Report 15621027 (Version 1)
Quarter: 2018Q4

REPORT INFORMATION
  Report Type: Spontaneous
  Country: US (occurrence: US)
  Receive Date: 20181109
  Receipt Date: 20181109
  Transmission Date: 20190205
  Serious: Yes (Hospitalization)
  Sender: FDA-Public Use
  Company Number: None

PATIENT
  Age: 49 Year
  Sex: Male
  Weight: 103.4 kg

DRUGS (1)
  1. SAXAGLIPTIN [Suspect]
     Active Substance: SAXAGLIPTIN
     Indication: DIABETES MELLITUS
     Route: 048
     Dates: start: 20180904, end: 20181012

REACTIONS (10)
  - Nausea [None]
  - Haemolysis [None]
  - Transaminases increased [None]
  - Vomiting [None]
  - Pancreatitis [None]
  - Anion gap [None]
  - Bile duct stone [None]
  - Lactic acidosis [None]
  - Abdominal pain [None]
  - Tachycardia [None]

NARRATIVE: CASE EVENT DATE: 20181012
